FAERS Safety Report 24643710 (Version 4)
Quarter: 2025Q1

REPORT INFORMATION
  Report Type: Spontaneous
  Country: GR (occurrence: GR)
  Receive Date: 20241120
  Receipt Date: 20250320
  Transmission Date: 20250408
  Serious: No
  Sender: PFIZER
  Company Number: GR-PFIZER INC-PV202400148333

PATIENT
  Age: 10 Year
  Sex: Male
  Weight: 27 kg

DRUGS (1)
  1. GENOTROPIN [Suspect]
     Active Substance: SOMATROPIN
     Indication: Dwarfism
     Route: 058
     Dates: start: 202411

REACTIONS (7)
  - Wrong technique in device usage process [Unknown]
  - Device leakage [Unknown]
  - Device connection issue [Unknown]
  - Device mechanical issue [Not Recovered/Not Resolved]
  - Device use error [Recovered/Resolved]
  - Device breakage [Not Recovered/Not Resolved]
  - Poor quality device used [Recovered/Resolved]

NARRATIVE: CASE EVENT DATE: 20241113
